FAERS Safety Report 25064893 (Version 11)
Quarter: 2025Q2

REPORT INFORMATION
  Report Type: Spontaneous
  Country: DE (occurrence: DE)
  Receive Date: 20250311
  Receipt Date: 20250616
  Transmission Date: 20250717
  Serious: Yes (Hospitalization, Other)
  Sender: SANDOZ
  Company Number: DE-002147023-NVSC2025DE036796

PATIENT
  Age: 82 Year
  Sex: Female
  Weight: 56 kg

DRUGS (127)
  1. AMIODARONE HYDROCHLORIDE [Suspect]
     Active Substance: AMIODARONE HYDROCHLORIDE
     Indication: Product used for unknown indication
     Route: 065
  2. CLOPIDOGREL BISULFATE [Suspect]
     Active Substance: CLOPIDOGREL BISULFATE
     Indication: Product used for unknown indication
     Route: 048
     Dates: start: 20170124, end: 20170124
  3. ASPIRIN [Suspect]
     Active Substance: ASPIRIN
     Indication: Product used for unknown indication
     Route: 065
  4. BISOPROLOL FUMARATE [Suspect]
     Active Substance: BISOPROLOL FUMARATE
     Indication: Product used for unknown indication
     Dosage: 0.5 MG, QD
     Route: 065
     Dates: start: 2016
  5. BISOPROLOL FUMARATE [Suspect]
     Active Substance: BISOPROLOL FUMARATE
     Indication: Product used for unknown indication
     Dosage: 5 MG, QD
     Route: 065
     Dates: start: 2016
  6. LACTULOSE [Suspect]
     Active Substance: LACTULOSE
     Indication: Product used for unknown indication
     Route: 065
     Dates: start: 20170124, end: 20170124
  7. CLOPIDOGREL [Suspect]
     Active Substance: CLOPIDOGREL BISULFATE
     Indication: Product used for unknown indication
     Route: 065
  8. CLOPIDOGREL [Suspect]
     Active Substance: CLOPIDOGREL BISULFATE
     Indication: Product used for unknown indication
     Route: 065
  9. CLOPIDOGREL [Suspect]
     Active Substance: CLOPIDOGREL BISULFATE
     Route: 048
  10. TROSPIUM CHLORIDE [Suspect]
     Active Substance: TROSPIUM CHLORIDE
     Dosage: 15 MG, QD
     Route: 065
     Dates: start: 20170124
  11. TROSPIUM CHLORIDE [Suspect]
     Active Substance: TROSPIUM CHLORIDE
     Indication: Product used for unknown indication
     Route: 065
     Dates: start: 20170124
  12. CERISA [Suspect]
     Active Substance: SULFACETAMIDE SODIUM\SULFUR
     Route: 065
  13. CERISA [Suspect]
     Active Substance: SULFACETAMIDE SODIUM\SULFUR
     Indication: Product used for unknown indication
     Route: 065
  14. DICLOFENAC [Suspect]
     Active Substance: DICLOFENAC
     Dosage: 2 DOSAGE FORM, QD
     Route: 065
  15. DICLOFENAC [Suspect]
     Active Substance: DICLOFENAC
     Indication: Product used for unknown indication
     Route: 065
  16. DICLOFENAC SODIUM [Suspect]
     Active Substance: DICLOFENAC SODIUM
     Indication: Product used for unknown indication
     Dosage: 2 DF, QD, FIRST AND LAST DOSE:  2016-10
     Route: 065
     Dates: start: 201610, end: 201610
  17. DICLOFENAC SODIUM [Suspect]
     Active Substance: DICLOFENAC SODIUM
     Dosage: 2 DOSAGE FORM, QD, FIRST AND LAST DOSE: 2016-10
     Route: 065
     Dates: start: 201610, end: 201610
  18. CHOLECALCIFEROL [Suspect]
     Active Substance: CHOLECALCIFEROL
     Indication: Product used for unknown indication
     Dosage: 20000 IU, QW, DAILY DOSE: 20000 IU INTERNATIONAL UNIT(S) EVERY WEEKS
     Route: 065
  19. FENTANYL [Suspect]
     Active Substance: FENTANYL
     Indication: Product used for unknown indication
     Route: 062
  20. FENTANYL [Suspect]
     Active Substance: FENTANYL
     Indication: Product used for unknown indication
  21. FENTANYL [Suspect]
     Active Substance: FENTANYL
     Indication: Product used for unknown indication
  22. FENTANYL TRANSDERMAL SYSTEM [Suspect]
     Active Substance: FENTANYL
     Indication: Product used for unknown indication
     Dosage: 75 UG, QH, 75 MICROGRAM/HOUR AND PLASTER CHANGE EVERY 3 DAYS
     Route: 062
  23. HYDROCHLOROTHIAZIDE\LOSARTAN [Suspect]
     Active Substance: HYDROCHLOROTHIAZIDE\LOSARTAN
     Indication: Product used for unknown indication
     Dosage: 1 DOSAGE FORM, QD (100/25 MG)
     Route: 065
     Dates: start: 2016
  24. HYDROCHLOROTHIAZIDE\LOSARTAN [Suspect]
     Active Substance: HYDROCHLOROTHIAZIDE\LOSARTAN
     Dosage: UNK, QD (100/25 MG)
     Route: 065
     Dates: start: 2016
  25. HUMIRA [Suspect]
     Active Substance: ADALIMUMAB
     Dosage: 2 DF, QW, 1 DOSAGE FORM, BIW
     Route: 059
     Dates: start: 20161115
  26. HUMIRA [Suspect]
     Active Substance: ADALIMUMAB
     Dosage: 2 DF, QW, 1 DOSAGE FORM, Q2W
     Route: 059
     Dates: start: 20160927
  27. HUMIRA [Suspect]
     Active Substance: ADALIMUMAB
     Dosage: 4 DF, QW, 2 DOSAGE FORM, BIW
     Route: 059
     Dates: start: 20120111, end: 20160927
  28. HUMIRA [Suspect]
     Active Substance: ADALIMUMAB
     Dosage: 40 MG, QW
     Route: 059
     Dates: start: 20120111
  29. HUMIRA [Suspect]
     Active Substance: ADALIMUMAB
     Dosage: 40 MG, QW
     Route: 059
     Dates: start: 20161115
  30. HUMIRA [Suspect]
     Active Substance: ADALIMUMAB
     Dosage: 40 MG, Q2W
     Route: 059
     Dates: start: 20120411, end: 20160927
  31. HUMIRA [Suspect]
     Active Substance: ADALIMUMAB
     Dosage: UNK, QW
     Route: 059
     Dates: start: 20161115
  32. HUMIRA [Suspect]
     Active Substance: ADALIMUMAB
     Indication: Rheumatoid arthritis
     Route: 059
     Dates: start: 20120411, end: 20160927
  33. LOSARTAN POTASSIUM [Suspect]
     Active Substance: LOSARTAN POTASSIUM
     Indication: Product used for unknown indication
     Dosage: 1 DF, QD
     Route: 065
     Dates: start: 2016
  34. LOSARTAN POTASSIUM [Suspect]
     Active Substance: LOSARTAN POTASSIUM
     Dosage: UNK UNK, QD (UNITS: UNKNOWN), DAILY
     Route: 065
     Dates: start: 2016
  35. EDOXABAN TOSYLATE [Suspect]
     Active Substance: EDOXABAN TOSYLATE
     Indication: Atrial fibrillation
     Dosage: 30 MG, QD, DAILY
     Route: 065
     Dates: start: 20160930
  36. METOPROLOL SUCCINATE [Suspect]
     Active Substance: METOPROLOL SUCCINATE
     Indication: Product used for unknown indication
     Route: 065
     Dates: start: 20170124, end: 20170124
  37. MOVICOL [Suspect]
     Active Substance: POLYETHYLENE GLYCOL 3350\POTASSIUM CHLORIDE\SODIUM BICARBONATE\SODIUM CHLORIDE
     Indication: Product used for unknown indication
     Route: 065
     Dates: start: 20170124
  38. PANTOPRAZOLE SODIUM [Suspect]
     Active Substance: PANTOPRAZOLE SODIUM
     Indication: Product used for unknown indication
     Dosage: 20 MG, QD
     Route: 065
  39. PANTOPRAZOLE SODIUM [Suspect]
     Active Substance: PANTOPRAZOLE SODIUM
     Indication: Product used for unknown indication
     Dosage: 20 MG, QD
     Route: 065
  40. PANTOPRAZOLE SODIUM [Suspect]
     Active Substance: PANTOPRAZOLE SODIUM
     Dosage: 20 MG, QD
     Route: 065
  41. PANTOPRAZOLE [Suspect]
     Active Substance: PANTOPRAZOLE
     Indication: Product used for unknown indication
     Dosage: 20 MG, QD
     Route: 065
  42. PANTOPRAZOLE [Suspect]
     Active Substance: PANTOPRAZOLE
     Indication: Product used for unknown indication
     Route: 065
  43. PREDNISOLONE [Suspect]
     Active Substance: PREDNISOLONE
     Indication: Product used for unknown indication
     Route: 065
  44. SIMVASTATIN [Suspect]
     Active Substance: SIMVASTATIN
     Indication: Product used for unknown indication
     Route: 065
  45. TROSPIUM CHLORIDE [Suspect]
     Active Substance: TROSPIUM CHLORIDE
     Route: 065
  46. TROSPIUM CHLORIDE [Suspect]
     Active Substance: TROSPIUM CHLORIDE
     Dosage: 15 MG, QD
     Route: 065
     Dates: start: 20170124, end: 20170124
  47. TROSPIUM CHLORIDE [Suspect]
     Active Substance: TROSPIUM CHLORIDE
     Indication: Product used for unknown indication
     Dosage: 45 MG, QD, DAILY
     Route: 065
     Dates: start: 20170124, end: 20170124
  48. FUROSEMIDE\SPIRONOLACTONE [Suspect]
     Active Substance: FUROSEMIDE\SPIRONOLACTONE
     Indication: Product used for unknown indication
     Dosage: 1 DF, QD, 1X/DAY, 50MG/20MG
     Route: 065
     Dates: start: 201610, end: 201610
  49. TORSEMIDE [Suspect]
     Active Substance: TORSEMIDE
     Indication: Product used for unknown indication
     Dosage: 15 MG, QD
     Route: 065
     Dates: start: 20170124, end: 20170124
  50. TORSEMIDE [Suspect]
     Active Substance: TORSEMIDE
     Dosage: 45 MG, QD
     Route: 065
     Dates: start: 20170124, end: 20170124
  51. TORSEMIDE [Suspect]
     Active Substance: TORSEMIDE
     Indication: Product used for unknown indication
     Dosage: 1 DOSAGE FORM, QD
     Route: 065
  52. TORSEMIDE [Suspect]
     Active Substance: TORSEMIDE
     Dosage: 5 MG, QD
     Route: 065
     Dates: start: 20170124, end: 20170124
  53. TORSEMIDE [Suspect]
     Active Substance: TORSEMIDE
     Dosage: UNK UNK, QD ( DOSE: 1, 1X/DAY)
     Route: 065
  54. VALSARTAN [Suspect]
     Active Substance: VALSARTAN
     Indication: Product used for unknown indication
     Route: 065
  55. DICLOFENAC [Suspect]
     Active Substance: DICLOFENAC
     Dosage: 2 DF, QD
     Route: 065
     Dates: start: 201610, end: 201610
  56. DICLOFENAC [Suspect]
     Active Substance: DICLOFENAC
     Indication: Product used for unknown indication
     Dosage: UNK, QD (2 (UNITS: UNKNOWN), DAILY )
     Route: 065
  57. DICLOFENAC [Suspect]
     Active Substance: DICLOFENAC
     Dosage: UNK, QD
     Route: 065
  58. DICLOFENAC [Suspect]
     Active Substance: DICLOFENAC
     Dosage: UNK, QD
     Route: 065
  59. DICLOFENAC [Suspect]
     Active Substance: DICLOFENAC
     Dosage: UNK, QD
     Route: 065
  60. XIPAMIDE [Suspect]
     Active Substance: XIPAMIDE
     Indication: Product used for unknown indication
     Route: 065
     Dates: start: 20170124, end: 20170124
  61. CORDAREX [Concomitant]
     Active Substance: AMIODARONE
     Indication: Product used for unknown indication
     Dosage: 200 MG, QD
     Route: 065
  62. CORDAREX [Concomitant]
     Active Substance: AMIODARONE
     Route: 065
  63. ENOXAPARIN [Concomitant]
     Active Substance: ENOXAPARIN
     Dosage: 0.5 MG, QD
     Route: 065
  64. ENOXAPARIN [Concomitant]
     Active Substance: ENOXAPARIN
     Dosage: 0.6 MG, QD
     Route: 065
  65. ENOXAPARIN [Concomitant]
     Active Substance: ENOXAPARIN
     Dosage: 0.6 MG, QD
     Route: 065
  66. ENOXAPARIN [Concomitant]
     Active Substance: ENOXAPARIN
     Dosage: 0.6 MG, QD
     Route: 065
  67. ENOXAPARIN [Concomitant]
     Active Substance: ENOXAPARIN
     Dosage: 0.6 MG, QD
     Route: 065
  68. ENOXAPARIN [Concomitant]
     Active Substance: ENOXAPARIN
     Dosage: 0.6 MG, QD
     Route: 065
  69. ENOXAPARIN [Concomitant]
     Active Substance: ENOXAPARIN
     Dosage: 0.6 MG, QD
     Route: 065
  70. ENOXAPARIN [Concomitant]
     Active Substance: ENOXAPARIN
     Dosage: UNK
     Route: 065
  71. ENOXAPARIN [Concomitant]
     Active Substance: ENOXAPARIN
     Dosage: UNK
     Route: 065
  72. ENOXAPARIN [Concomitant]
     Active Substance: ENOXAPARIN
     Indication: Product used for unknown indication
     Dosage: 5 MG, QD
     Route: 065
  73. ENOXAPARIN [Concomitant]
     Active Substance: ENOXAPARIN
     Dosage: 5 MG, QD
     Route: 065
  74. ENOXAPARIN [Concomitant]
     Active Substance: ENOXAPARIN
     Dosage: 5 MG, QD
     Route: 065
  75. FOLIC ACID [Concomitant]
     Active Substance: FOLIC ACID
     Indication: Product used for unknown indication
     Route: 065
  76. FOLIC ACID [Concomitant]
     Active Substance: FOLIC ACID
     Route: 065
     Dates: start: 20170124
  77. FOLIC ACID [Concomitant]
     Active Substance: FOLIC ACID
     Route: 065
  78. FOLIC ACID [Concomitant]
     Active Substance: FOLIC ACID
     Route: 065
  79. FOLIC ACID [Concomitant]
     Active Substance: FOLIC ACID
     Route: 065
  80. NADROPARIN CALCIUM [Concomitant]
     Active Substance: NADROPARIN CALCIUM
     Indication: Product used for unknown indication
     Dosage: 5700 IU, QD
     Route: 059
  81. NADROPARIN CALCIUM [Concomitant]
     Active Substance: NADROPARIN CALCIUM
     Dosage: DAILY DOSE: 5700 IU INTERNATIONAL UNIT(S) EVERY DAYS
     Route: 058
  82. NADROPARIN CALCIUM [Concomitant]
     Active Substance: NADROPARIN CALCIUM
     Route: 065
  83. NADROPARIN CALCIUM [Concomitant]
     Active Substance: NADROPARIN CALCIUM
     Route: 065
  84. NADROPARIN CALCIUM [Concomitant]
     Active Substance: NADROPARIN CALCIUM
     Route: 065
  85. NADROPARIN CALCIUM [Concomitant]
     Active Substance: NADROPARIN CALCIUM
     Route: 065
  86. NADROPARIN CALCIUM [Concomitant]
     Active Substance: NADROPARIN CALCIUM
     Route: 065
  87. LEVOSIMENDAN [Concomitant]
     Active Substance: LEVOSIMENDAN
     Route: 065
  88. LEVOSIMENDAN [Concomitant]
     Active Substance: LEVOSIMENDAN
     Route: 065
  89. LEVOSIMENDAN [Concomitant]
     Active Substance: LEVOSIMENDAN
     Route: 065
  90. LEVOSIMENDAN [Concomitant]
     Active Substance: LEVOSIMENDAN
     Route: 065
  91. LEVOSIMENDAN [Concomitant]
     Active Substance: LEVOSIMENDAN
     Route: 065
  92. LEVOSIMENDAN [Concomitant]
     Active Substance: LEVOSIMENDAN
     Indication: Product used for unknown indication
     Route: 065
  93. LEVOSIMENDAN [Concomitant]
     Active Substance: LEVOSIMENDAN
     Route: 065
     Dates: start: 201611, end: 201611
  94. LEVOSIMENDAN [Concomitant]
     Active Substance: LEVOSIMENDAN
     Route: 065
  95. LEVOSIMENDAN [Concomitant]
     Active Substance: LEVOSIMENDAN
     Route: 065
  96. LEVOSIMENDAN [Concomitant]
     Active Substance: LEVOSIMENDAN
     Route: 065
  97. MAGALDRATE [Concomitant]
     Active Substance: MAGALDRATE
     Dosage: 1600 MG, QD
     Route: 048
  98. MAGALDRATE [Concomitant]
     Active Substance: MAGALDRATE
     Indication: Product used for unknown indication
     Dosage: 4800 MG, QD
     Route: 048
  99. Riopan [Concomitant]
     Indication: Product used for unknown indication
     Dosage: 1600 MG, QD
     Route: 048
  100. Riopan [Concomitant]
     Dosage: 4800 MG, QD
     Route: 048
  101. SODIUM CHLORIDE [Concomitant]
     Active Substance: SODIUM CHLORIDE
     Indication: Product used for unknown indication
     Dosage: 1 DOSAGE FORM, QD
     Route: 065
  102. SODIUM CHLORIDE [Concomitant]
     Active Substance: SODIUM CHLORIDE
     Dosage: 3 DOSAGE FORM, QD
     Route: 065
  103. SODIUM CHLORIDE [Concomitant]
     Active Substance: SODIUM CHLORIDE
     Dosage: UNK, QD
     Route: 065
  104. SODIUM CHLORIDE [Concomitant]
     Active Substance: SODIUM CHLORIDE
     Dosage: UNK, QD
     Route: 065
  105. SODIUM CHLORIDE [Concomitant]
     Active Substance: SODIUM CHLORIDE
     Dosage: UNK, QD
     Route: 065
  106. SODIUM CHLORIDE [Concomitant]
     Active Substance: SODIUM CHLORIDE
     Dosage: UNK, QD
     Route: 065
  107. SODIUM CHLORIDE [Concomitant]
     Active Substance: SODIUM CHLORIDE
     Dosage: UNK, QD
     Route: 065
  108. SODIUM CHLORIDE [Concomitant]
     Active Substance: SODIUM CHLORIDE
     Dosage: UNK, QD
     Route: 065
  109. SODIUM CHLORIDE [Concomitant]
     Active Substance: SODIUM CHLORIDE
     Dosage: UNK, QD
     Route: 065
  110. SODIUM CHLORIDE [Concomitant]
     Active Substance: SODIUM CHLORIDE
     Dosage: UNK, QD
     Route: 065
  111. SODIUM CHLORIDE [Concomitant]
     Active Substance: SODIUM CHLORIDE
     Dosage: UNK, QD
     Route: 065
  112. SODIUM CHLORIDE [Concomitant]
     Active Substance: SODIUM CHLORIDE
     Dosage: UNK, QD
     Route: 065
  113. SODIUM CHLORIDE [Concomitant]
     Active Substance: SODIUM CHLORIDE
     Dosage: UNK, QD
     Route: 065
  114. SODIUM CHLORIDE [Concomitant]
     Active Substance: SODIUM CHLORIDE
     Dosage: UNK, QD
     Route: 065
  115. SODIUM CHLORIDE [Concomitant]
     Active Substance: SODIUM CHLORIDE
     Dosage: UNK, QD
     Route: 065
  116. SODIUM CHLORIDE [Concomitant]
     Active Substance: SODIUM CHLORIDE
     Dosage: UNK, QD
     Route: 065
  117. SODIUM CHLORIDE [Concomitant]
     Active Substance: SODIUM CHLORIDE
     Dosage: UNK, QD
     Route: 065
  118. SODIUM CHLORIDE [Concomitant]
     Active Substance: SODIUM CHLORIDE
     Dosage: UNK, QD
     Route: 065
  119. SODIUM CHLORIDE [Concomitant]
     Active Substance: SODIUM CHLORIDE
     Dosage: UNK, QD
     Route: 065
  120. SODIUM CHLORIDE [Concomitant]
     Active Substance: SODIUM CHLORIDE
     Dosage: UNK, QD
     Route: 065
  121. SODIUM CHLORIDE [Concomitant]
     Active Substance: SODIUM CHLORIDE
     Dosage: UNK, QD
     Route: 065
  122. SODIUM CHLORIDE [Concomitant]
     Active Substance: SODIUM CHLORIDE
     Dosage: UNK, QD
     Route: 065
  123. SODIUM CHLORIDE [Concomitant]
     Active Substance: SODIUM CHLORIDE
     Route: 065
  124. SODIUM CHLORIDE [Concomitant]
     Active Substance: SODIUM CHLORIDE
     Route: 065
  125. SODIUM CHLORIDE [Concomitant]
     Active Substance: SODIUM CHLORIDE
     Route: 065
  126. SODIUM CHLORIDE [Concomitant]
     Active Substance: SODIUM CHLORIDE
     Route: 065
  127. SODIUM CHLORIDE [Concomitant]
     Active Substance: SODIUM CHLORIDE
     Route: 065

REACTIONS (70)
  - Wound infection pseudomonas [Recovering/Resolving]
  - Femoral hernia incarcerated [Recovered/Resolved]
  - Lymphatic fistula [Recovered/Resolved]
  - Seroma [Unknown]
  - Eructation [Unknown]
  - Pulmonary hypertension [Recovering/Resolving]
  - Hiatus hernia [Unknown]
  - Inflammatory marker increased [Recovered/Resolved]
  - Faecaloma [Unknown]
  - Cardiogenic shock [Unknown]
  - Hepatic cyst [Unknown]
  - Mitral valve incompetence [Unknown]
  - Gait disturbance [Recovering/Resolving]
  - Dyspnoea [Unknown]
  - Coronary artery disease [Unknown]
  - Cardiovascular disorder [Unknown]
  - Hyperkalaemia [Unknown]
  - Postoperative wound infection [Recovered/Resolved]
  - Groin pain [Not Recovered/Not Resolved]
  - Urinary tract infection [Recovering/Resolving]
  - Diverticulum intestinal [Unknown]
  - Left ventricular dysfunction [Recovered/Resolved]
  - Arthralgia [Unknown]
  - Pulmonary hypertension [Recovering/Resolving]
  - Eructation [Unknown]
  - Groin pain [Unknown]
  - Eructation [Unknown]
  - Acute kidney injury [Unknown]
  - Vomiting [Unknown]
  - Dyspepsia [Unknown]
  - Joint dislocation [Recovered/Resolved]
  - Oedema peripheral [Unknown]
  - Joint dislocation [Recovered/Resolved]
  - Haematuria [Recovering/Resolving]
  - Escherichia infection [Unknown]
  - Diverticulum intestinal [Recovering/Resolving]
  - Joint dislocation [Recovered/Resolved]
  - Fall [Recovered/Resolved]
  - Anuria [Recovered/Resolved]
  - Groin pain [Unknown]
  - Tachyarrhythmia [Unknown]
  - Escherichia infection [Unknown]
  - Haemarthrosis [Unknown]
  - Joint dislocation [Recovered/Resolved]
  - Aortic valve stenosis [Unknown]
  - General physical health deterioration [Unknown]
  - Aplastic anaemia [Unknown]
  - Pancreatic steatosis [Unknown]
  - Fall [Unknown]
  - Gastrointestinal haemorrhage [Recovered/Resolved]
  - Hyponatraemia [Unknown]
  - Urinary retention [Unknown]
  - Wound dehiscence [Recovered/Resolved]
  - Osteopenia [Unknown]
  - Aortic arteriosclerosis [Unknown]
  - Diverticulum intestinal [Unknown]
  - Tricuspid valve incompetence [Unknown]
  - Joint dislocation [Unknown]
  - Peripheral swelling [Recovered/Resolved]
  - Myocardial infarction [Recovered/Resolved]
  - Impaired healing [Recovered/Resolved]
  - Arterial haemorrhage [Recovered/Resolved]
  - Myelodysplastic syndrome [Unknown]
  - Oedema peripheral [Unknown]
  - Anaemia [Recovered/Resolved]
  - Dyspepsia [Unknown]
  - Haematuria [Recovering/Resolving]
  - Gastrointestinal haemorrhage [Recovered/Resolved]
  - Abdominal discomfort [Unknown]
  - Decreased appetite [Unknown]

NARRATIVE: CASE EVENT DATE: 20160101
